FAERS Safety Report 5117055-1 (Version None)
Quarter: 2006Q3

REPORT INFORMATION
  Report Type: 
  Country: None (occurrence: None)
  Receive Date: 20060925
  Receipt Date: 20060911
  Transmission Date: 20061208
  Serious: Yes (Other)
  Sender: FDA-Public Use
  Company Number: 2006111470

PATIENT
  Age: 75 Year
  Sex: Male

DRUGS (3)
  1. CLINDAMYCIN HYDROCHLORIDE [Suspect]
     Indication: ABSCESS
     Dosage: 900 MG (300 MG, 3 IN 1 D), ORAL
     Route: 048
  2. CLOXACILLIN BENZATHINE [Suspect]
  3. AULIN (NIMESULIDE) [Concomitant]

REACTIONS (1)
  - GASTROINTESTINAL HAEMORRHAGE [None]
